FAERS Safety Report 4634453-0 (Version None)
Quarter: 2005Q2

REPORT INFORMATION
  Report Type: 
  Country: None (occurrence: None)
  Receive Date: 20050412
  Receipt Date: 20050331
  Transmission Date: 20051028
  Serious: Yes (Hospitalization)
  Sender: FDA-Public Use
  Company Number: 2005AD000020

PATIENT
  Age: 60 Year
  Sex: Female

DRUGS (3)
  1. KEFLEX [Suspect]
     Indication: SKIN INFECTION
  2. PREDNISONE [Concomitant]
  3. ATARAX [Concomitant]

REACTIONS (4)
  - ERYTHEMA [None]
  - PEMPHIGOID [None]
  - RASH PRURITIC [None]
  - RASH PUSTULAR [None]
